FAERS Safety Report 4319230-2 (Version None)
Quarter: 2004Q1

REPORT INFORMATION
  Report Type: 
  Country: None (occurrence: None)
  Receive Date: 20040316
  Receipt Date: 20040302
  Transmission Date: 20041129
  Serious: Yes (Hospitalization)
  Sender: FDA-Public Use
  Company Number: 03P-251-0242032

PATIENT
  Age: 2 Year
  Sex: Female

DRUGS (4)
  1. VALPROATE SODIUM [Suspect]
     Indication: CEREBRAL ATROPHY
     Dosage: SEE IMAGE ORAL
     Route: 048
     Dates: start: 20030101, end: 20030101
  2. VALPROATE SODIUM [Suspect]
     Indication: EPILEPSY
     Dosage: SEE IMAGE ORAL
     Route: 048
     Dates: start: 20030101, end: 20030101
  3. VALPROATE SODIUM [Suspect]
     Indication: CEREBRAL ATROPHY
     Dosage: SEE IMAGE ORAL
     Route: 048
     Dates: start: 20030101
  4. VALPROATE SODIUM [Suspect]
     Indication: EPILEPSY
     Dosage: SEE IMAGE ORAL
     Route: 048
     Dates: start: 20030101

REACTIONS (3)
  - DRUG INEFFECTIVE [None]
  - EPILEPSY [None]
  - PHARMACEUTICAL PRODUCT COMPLAINT [None]
